FAERS Safety Report 17760685 (Version 1)
Quarter: 2020Q2

REPORT INFORMATION
  Report Type: Spontaneous
  Country: NO (occurrence: NO)
  Receive Date: 20200508
  Receipt Date: 20200508
  Transmission Date: 20200714
  Serious: Yes (Other)
  Sender: FDA-Public Use
  Company Number: NVSC2020NO124645

PATIENT
  Age: 30 Year
  Sex: Female
  Weight: 60 kg

DRUGS (4)
  1. IBUX [Concomitant]
     Active Substance: IBUPROFEN
     Indication: PRODUCT USED FOR UNKNOWN INDICATION
     Dosage: UNK
     Route: 065
  2. DOKSYCYKLIN HEXAL 100 MG TABLETTER. [Suspect]
     Active Substance: DOXYCYCLINE
     Indication: RESPIRATORY TRACT INFECTION
     Dosage: 1 DF, QD (2 TABLETS FIRST DAY OF THERAPY)
     Route: 065
     Dates: start: 20200109
  3. PANODIL [Concomitant]
     Active Substance: ACETAMINOPHEN
     Indication: PRODUCT USED FOR UNKNOWN INDICATION
     Dosage: UNK
     Route: 065
  4. KODEIN [Concomitant]
     Active Substance: CODEINE PHOSPHATE
     Indication: PRODUCT USED FOR UNKNOWN INDICATION
     Dosage: UNK
     Route: 065

REACTIONS (1)
  - Polyneuropathy [Not Recovered/Not Resolved]

NARRATIVE: CASE EVENT DATE: 20200109
